FAERS Safety Report 8459808-8 (Version None)
Quarter: 2012Q2

REPORT INFORMATION
  Report Type: 
  Country: None (occurrence: None)
  Receive Date: 20120622
  Receipt Date: 20120614
  Transmission Date: 20120825
  Serious: Yes (Hospitalization, Other)
  Sender: FDA-Public Use
  Company Number: PHHY2011JP95602

PATIENT
  Sex: Female
  Weight: 45 kg

DRUGS (12)
  1. ONCOVIN [Concomitant]
     Dosage: 1.9 MG, UNK
     Route: 042
     Dates: end: 20110329
  2. RABEPRAZOLE SODIUM [Concomitant]
     Dosage: 10 MG, UNK
     Route: 048
     Dates: start: 20110315, end: 20110510
  3. IMATINIB MESYLATE [Suspect]
     Indication: ACUTE BIPHENOTYPIC LEUKAEMIA
     Dosage: 600 MG, DAILY
     Route: 048
     Dates: start: 20110322, end: 20110509
  4. ALLOPURINOL [Concomitant]
     Dosage: 300 MG, UNK
     Route: 048
     Dates: start: 20110311, end: 20110412
  5. ONCOVIN [Concomitant]
     Indication: ACUTE BIPHENOTYPIC LEUKAEMIA
     Dosage: 1.9 MG, UNK
     Route: 042
     Dates: start: 20110315
  6. ZOLOFT [Concomitant]
     Dosage: 100 MG, UNK
     Route: 048
     Dates: start: 20110311
  7. ONCOVIN [Concomitant]
     Dosage: 1.9 MG, UNK
     Route: 042
  8. PREDNISOLONE [Concomitant]
     Indication: ACUTE BIPHENOTYPIC LEUKAEMIA
     Dosage: 85 MG, UNK
     Route: 048
     Dates: start: 20110315, end: 20110414
  9. ITRACONAZOLE [Concomitant]
     Dosage: 200 MG, UNK
     Route: 048
     Dates: start: 20110315, end: 20110510
  10. POLYMYCIN B SULFATE [Concomitant]
     Dosage: 3000000 IU, UNK
     Route: 048
     Dates: start: 20110315, end: 20110412
  11. COTRIM [Concomitant]
     Dosage: 1 DF, UNK
     Route: 048
     Dates: start: 20110315, end: 20110510
  12. SERTRALINE HYDROCHLORIDE [Suspect]
     Dosage: 100 MG, UNK

REACTIONS (3)
  - ABDOMINAL PAIN UPPER [None]
  - ANAEMIA [None]
  - GASTRIC ANTRAL VASCULAR ECTASIA [None]
